FAERS Safety Report 12503516 (Version 1)
Quarter: 2016Q2

REPORT INFORMATION
  Report Type: Spontaneous
  Country: US (occurrence: None)
  Receive Date: 20160627
  Receipt Date: 20160627
  Transmission Date: 20160815
  Serious: Yes (Hospitalization)
  Sender: FDA-Public Use
  Company Number: None

PATIENT
  Age: 38 Year
  Sex: Female
  Weight: 90.27 kg

DRUGS (3)
  1. STRATTERA [Suspect]
     Active Substance: ATOMOXETINE HYDROCHLORIDE
     Indication: ATTENTION DEFICIT/HYPERACTIVITY DISORDER
     Dosage: 30 CAPSULE(S) IN THE MORNING, TAKEN BY MOUTH
     Route: 048
     Dates: start: 20151230, end: 20160121
  2. STRATTERA [Suspect]
     Active Substance: ATOMOXETINE HYDROCHLORIDE
     Indication: ANXIETY
     Dosage: 30 CAPSULE(S) IN THE MORNING, TAKEN BY MOUTH
     Route: 048
     Dates: start: 20151230, end: 20160121
  3. STRATTERA [Suspect]
     Active Substance: ATOMOXETINE HYDROCHLORIDE
     Indication: DEPRESSION
     Dosage: 30 CAPSULE(S) IN THE MORNING, TAKEN BY MOUTH
     Route: 048
     Dates: start: 20151230, end: 20160121

REACTIONS (3)
  - Abdominal pain [None]
  - Nausea [None]
  - Vomiting [None]

NARRATIVE: CASE EVENT DATE: 20160201
